FAERS Safety Report 5849074-1 (Version None)
Quarter: 2008Q3

REPORT INFORMATION
  Report Type: 
  Country: None (occurrence: None)
  Receive Date: 20080819
  Receipt Date: 20080811
  Transmission Date: 20090109
  Serious: Yes (Other)
  Sender: FDA-Public Use
  Company Number: PHHY2008FI17331

PATIENT
  Age: 36 Year
  Sex: Male

DRUGS (2)
  1. CLOZAPINE [Suspect]
     Indication: DELUSION
     Dosage: 500 MG/DAY
     Dates: start: 20050101, end: 20080501
  2. ZYPREXA [Concomitant]
     Route: 065

REACTIONS (3)
  - AGGRESSION [None]
  - SELF-INJURIOUS IDEATION [None]
  - THROMBOSIS [None]
